FAERS Safety Report 17821184 (Version 3)
Quarter: 2020Q2

REPORT INFORMATION
  Report Type: Spontaneous
  Country: US (occurrence: US)
  Receive Date: 20200525
  Receipt Date: 20200528
  Transmission Date: 20200714
  Serious: Yes (Death, Life-Threatening, Hospitalization, Other)
  Sender: FDA-Public Use
  Company Number: US-SA-2020SA129680

PATIENT
  Age: 65 Year
  Sex: Male

DRUGS (5)
  1. TAMSULOSIN HYDROCHLORIDE. [Suspect]
     Active Substance: TAMSULOSIN HYDROCHLORIDE
     Indication: SUICIDE ATTEMPT
     Dosage: THE THREE BOTTLES WERE 30-DAY SUPPLIES OF TAMSULOSIN 0.4 MG (30 TABLETS),
     Route: 048
  2. TAMSULOSIN HYDROCHLORIDE. [Suspect]
     Active Substance: TAMSULOSIN HYDROCHLORIDE
     Dosage: 30 DF, TABLET
     Route: 048
  3. PREZISTA [Concomitant]
     Active Substance: DARUNAVIR ETHANOLATE
     Indication: SUICIDE ATTEMPT
     Dosage: 30 DF, TOTAL
     Route: 048
  4. GENVOYA [COBICISTAT;ELVITEGRAVIR;EMTRICITABINE;TENOFOVIR ALAFENAMIDE F [Concomitant]
     Indication: SUICIDE ATTEMPT
     Dosage: 150-150-200-10 MG (30 TABLET), TOTAL
     Route: 048
  5. DARUNAVIR ETHANOLATE. [Suspect]
     Active Substance: DARUNAVIR ETHANOLATE
     Indication: PRODUCT USED FOR UNKNOWN INDICATION
     Dosage: 2400 MG (800 MG 30 TABLETS), TOTAL
     Route: 065

REACTIONS (10)
  - Completed suicide [Fatal]
  - Cardiac arrest [Fatal]
  - Bundle branch block right [Fatal]
  - Overdose [Fatal]
  - Toxicity to various agents [Fatal]
  - Intentional overdose [Unknown]
  - Pulseless electrical activity [Fatal]
  - Blood pressure decreased [Fatal]
  - Haemodynamic instability [Unknown]
  - Mental status changes [Fatal]
